FAERS Safety Report 8168361-8 (Version None)
Quarter: 2012Q1

REPORT INFORMATION
  Report Type: 
  Country: None (occurrence: None)
  Receive Date: 20120227
  Receipt Date: 20120216
  Transmission Date: 20120608
  Serious: Yes (Death, Hospitalization, Disabling, Other)
  Sender: FDA-Public Use
  Company Number: US-MERCK-1105USA03431

PATIENT
  Age: 86 Year
  Sex: Female
  Weight: 57 kg

DRUGS (4)
  1. FOSAMAX [Suspect]
     Route: 048
     Dates: start: 20070101, end: 20081117
  2. FOSAMAX [Suspect]
     Route: 048
     Dates: start: 20070101, end: 20081117
  3. FOSAMAX [Suspect]
     Indication: OSTEOPOROSIS
     Route: 048
     Dates: start: 20050101, end: 20071117
  4. FOSAMAX [Suspect]
     Route: 048
     Dates: start: 20050101, end: 20071117

REACTIONS (50)
  - CHEST PAIN [None]
  - JAW DISORDER [None]
  - TOXIC ENCEPHALOPATHY [None]
  - PNEUMONIA [None]
  - OSTEOMYELITIS [None]
  - DEMENTIA [None]
  - DEHYDRATION [None]
  - JOINT SWELLING [None]
  - POOR QUALITY SLEEP [None]
  - HALLUCINATION [None]
  - MUSCLE SPASMS [None]
  - DEPRESSION [None]
  - OSTEONECROSIS OF JAW [None]
  - CEREBROVASCULAR ACCIDENT [None]
  - PLEURAL EFFUSION [None]
  - RENAL FAILURE [None]
  - ORAL DISORDER [None]
  - DEEP VEIN THROMBOSIS [None]
  - MALNUTRITION [None]
  - HYPERTENSION [None]
  - ONYCHOMYCOSIS [None]
  - DENTAL CARIES [None]
  - RESPIRATORY FAILURE [None]
  - ORAL INFECTION [None]
  - WOUND DEHISCENCE [None]
  - URINARY TRACT INFECTION [None]
  - BACTERIAL INFECTION [None]
  - MYALGIA [None]
  - CHRONIC OBSTRUCTIVE PULMONARY DISEASE [None]
  - AGITATION [None]
  - HIP FRACTURE [None]
  - WEIGHT FLUCTUATION [None]
  - SINUS BRADYCARDIA [None]
  - ARTHRALGIA [None]
  - POLLAKIURIA [None]
  - IMPAIRED HEALING [None]
  - DIVERTICULUM [None]
  - ANXIETY [None]
  - ARTERIOSCLEROSIS CORONARY ARTERY [None]
  - BLOOD OSMOLARITY ABNORMAL [None]
  - VENOUS INSUFFICIENCY [None]
  - TOOTH DISORDER [None]
  - DYSPHONIA [None]
  - DYSPHAGIA [None]
  - HYPONATRAEMIA [None]
  - VARICOSE VEIN [None]
  - LACUNAR INFARCTION [None]
  - HAEMORRHOIDS [None]
  - COLONIC POLYP [None]
  - DYSPNOEA [None]
